FAERS Safety Report 6164488-0 (Version None)
Quarter: 2009Q2

REPORT INFORMATION
  Report Type: 
  Country: None (occurrence: None)
  Receive Date: 20090421
  Receipt Date: 20090406
  Transmission Date: 20091009
  Serious: Yes (Other)
  Sender: FDA-Public Use
  Company Number: 090407-0000579

PATIENT
  Age: 20 Year
  Sex: Female

DRUGS (4)
  1. NEMBUTAL [Suspect]
     Indication: STATUS EPILEPTICUS
     Dosage: 9 MG / KG ; QH ; IV
     Route: 042
  2. BENZODIAZEPINES [Concomitant]
  3. FOSPHENYTOIN [Concomitant]
  4. LEVETIRACETAM [Concomitant]

REACTIONS (3)
  - CONVULSION [None]
  - LACERATION [None]
  - SWOLLEN TONGUE [None]
